FAERS Safety Report 21392622 (Version 1)
Quarter: 2022Q3

REPORT INFORMATION
  Report Type: Spontaneous
  Country: CN (occurrence: CN)
  Receive Date: 20220929
  Receipt Date: 20220929
  Transmission Date: 20221027
  Serious: Yes (Other)
  Sender: FDA-Public Use
  Company Number: CN-009507513-2209CHN010673

PATIENT
  Age: 65 Year
  Sex: Male
  Weight: 62 kg

DRUGS (1)
  1. KEYTRUDA [Suspect]
     Active Substance: PEMBROLIZUMAB
     Dosage: 200 MILLIGRAM, Q21D, ONCE
     Route: 041
     Dates: start: 20220727, end: 20220727

REACTIONS (2)
  - Thrombocytopenia [Not Recovered/Not Resolved]
  - Platelet count decreased [Unknown]

NARRATIVE: CASE EVENT DATE: 20220101
